FAERS Safety Report 20015515 (Version 1)
Quarter: 2021Q4

REPORT INFORMATION
  Report Type: Spontaneous
  Country: US (occurrence: None)
  Receive Date: 20211101
  Receipt Date: 20211101
  Transmission Date: 20220303
  Serious: Yes (Disabling)
  Sender: FDA-Public Use
  Company Number: None

PATIENT
  Age: 37 Year
  Sex: Female
  Weight: 47.25 kg

DRUGS (1)
  1. OTEZLA [Suspect]
     Active Substance: APREMILAST
     Indication: Skin exfoliation
     Dosage: FREQUENCY : TWICE A DAY;?
     Route: 048
     Dates: start: 20211004, end: 20211027

REACTIONS (2)
  - Diarrhoea [None]
  - Upper respiratory tract infection [None]

NARRATIVE: CASE EVENT DATE: 20211025
